FAERS Safety Report 25671571 (Version 2)
Quarter: 2025Q3

REPORT INFORMATION
  Report Type: Spontaneous
  Country: US (occurrence: US)
  Receive Date: 20250812
  Receipt Date: 20250825
  Transmission Date: 20251021
  Serious: No
  Sender: PFIZER
  Company Number: US-PFIZER INC-202500160487

PATIENT
  Age: 68 Year
  Sex: Female
  Weight: 97.052 kg

DRUGS (6)
  1. IBRANCE [Suspect]
     Active Substance: PALBOCICLIB
     Indication: Breast cancer female
     Dosage: 100 MG, DAILY
     Route: 048
     Dates: start: 20240816
  2. TIZANIDINE [Concomitant]
     Active Substance: TIZANIDINE
  3. PREGABALIN [Concomitant]
     Active Substance: PREGABALIN
  4. DICLOFENAC [Concomitant]
     Active Substance: DICLOFENAC
  5. MAGNESIUM [Concomitant]
     Active Substance: MAGNESIUM
  6. IMODIUM AD [Concomitant]
     Active Substance: LOPERAMIDE HYDROCHLORIDE

REACTIONS (2)
  - Pruritus [Recovering/Resolving]
  - Rash [Recovering/Resolving]

NARRATIVE: CASE EVENT DATE: 20250807
